FAERS Safety Report 12391002 (Version 1)
Quarter: 2016Q2

REPORT INFORMATION
  Report Type: Report from Study
  Country: US (occurrence: US)
  Receive Date: 20160520
  Receipt Date: 20160520
  Transmission Date: 20160815
  Serious: Yes (Hospitalization)
  Sender: FDA-Public Use
  Company Number: US-ABBVIE-16K-163-1631692-00

PATIENT
  Sex: Male

DRUGS (1)
  1. HUMIRA [Suspect]
     Active Substance: ADALIMUMAB
     Indication: PRODUCT USED FOR UNKNOWN INDICATION
     Route: 058
     Dates: start: 201603

REACTIONS (3)
  - Injection site pain [Not Recovered/Not Resolved]
  - Gastrointestinal ulcer haemorrhage [Unknown]
  - Diverticulitis [Unknown]

NARRATIVE: CASE EVENT DATE: 2016
